FAERS Safety Report 5084005-6 (Version None)
Quarter: 2006Q3

REPORT INFORMATION
  Report Type: 
  Country: None (occurrence: None)
  Receive Date: 20060814
  Receipt Date: 20060803
  Transmission Date: 20061208
  Serious: Yes (Hospitalization, Other)
  Sender: FDA-Public Use
  Company Number: HQWYE731110APR06

PATIENT
  Sex: Female

DRUGS (6)
  1. PANTOPRAZOLE SODIUM [Suspect]
     Indication: GASTRITIS
     Dosage: 40 MG 1X PER 1 DAY ORAL
     Route: 048
     Dates: start: 20050513, end: 20050529
  2. PANTOPRAZOLE SODIUM [Suspect]
     Indication: GASTROINTESTINAL DISORDER
     Dosage: 40 MG 1X PER 1 DAY ORAL
     Route: 048
     Dates: start: 20050513, end: 20050529
  3. PANTOPRAZOLE SODIUM [Suspect]
     Indication: GASTROOESOPHAGEAL REFLUX DISEASE
     Dosage: 40 MG 1X PER 1 DAY ORAL
     Route: 048
     Dates: start: 20050513, end: 20050529
  4. ZOPICLONE (ZOPICLONE) [Concomitant]
  5. ALTACE [Concomitant]
  6. METOPROLOL (METOPROLOL) [Concomitant]

REACTIONS (3)
  - BURNING SENSATION [None]
  - COLITIS [None]
  - GASTRITIS [None]
